FAERS Safety Report 19518206 (Version 1)
Quarter: 2021Q3

REPORT INFORMATION
  Report Type: Report from Study
  Country: None (occurrence: CA)
  Receive Date: 20210712
  Receipt Date: 20210712
  Transmission Date: 20211014
  Serious: Yes (Other)
  Sender: FDA-Public Use
  Company Number: CA-ABBVIE-21K-028-3904595-00

PATIENT
  Age: 60 Year
  Sex: Female

DRUGS (7)
  1. CLOPIDOGREL [Suspect]
     Active Substance: CLOPIDOGREL BISULFATE
     Indication: PRODUCT USED FOR UNKNOWN INDICATION
     Route: 065
  2. TICAGRELOR. [Suspect]
     Active Substance: TICAGRELOR
     Indication: BLOOD PRESSURE MEASUREMENT
     Route: 065
     Dates: start: 2021
  3. PFIZER?BIONTECH COVID?19 VACCINE [Suspect]
     Active Substance: TOZINAMERAN
     Indication: COVID-19 PROPHYLAXIS
     Dosage: PFIZER
     Route: 030
     Dates: start: 20210520, end: 20210520
  4. ROSUVASTATIN. [Suspect]
     Active Substance: ROSUVASTATIN
     Route: 065
  5. HUMIRA [Suspect]
     Active Substance: ADALIMUMAB
     Route: 058
     Dates: start: 2021
  6. ROSUVASTATIN. [Suspect]
     Active Substance: ROSUVASTATIN
     Indication: BLOOD CHOLESTEROL
     Route: 065
  7. HUMIRA [Suspect]
     Active Substance: ADALIMUMAB
     Indication: RHEUMATOID ARTHRITIS
     Route: 058
     Dates: start: 20200730, end: 20210520

REACTIONS (15)
  - Inflammatory marker increased [Unknown]
  - Heart rate decreased [Recovered/Resolved]
  - Dyskinesia [Unknown]
  - Rheumatoid arthritis [Unknown]
  - Tremor [Unknown]
  - Procedural complication [Unknown]
  - Heart rate decreased [Unknown]
  - Malaise [Unknown]
  - Blood iron decreased [Not Recovered/Not Resolved]
  - Oropharyngeal pain [Unknown]
  - Rotator cuff syndrome [Unknown]
  - Coronary artery occlusion [Unknown]
  - Fatigue [Not Recovered/Not Resolved]
  - Cyanosis [Unknown]
  - Mobility decreased [Unknown]

NARRATIVE: CASE EVENT DATE: 202101
